FAERS Safety Report 12788086 (Version 1)
Quarter: 2016Q3

REPORT INFORMATION
  Report Type: Spontaneous
  Country: TW (occurrence: TW)
  Receive Date: 20160928
  Receipt Date: 20160928
  Transmission Date: 20161109
  Serious: Yes (Other)
  Sender: FDA-Public Use
  Company Number: TW-MACLEODS PHARMACEUTICALS US LTD-MAC2016003156

PATIENT

DRUGS (6)
  1. AMLODIPINE/BENAZEPRIL [Concomitant]
     Active Substance: AMLODIPINE BESYLATE\BENAZEPRIL HYDROCHLORIDE
     Indication: HYPERTENSION
     Dosage: UNK
     Route: 065
  2. BISOPROLOL [Concomitant]
     Active Substance: BISOPROLOL
     Indication: HYPERTENSION
     Dosage: UNK
     Route: 065
  3. METHOTREXATE. [Suspect]
     Active Substance: METHOTREXATE
     Indication: PRODUCT USED FOR UNKNOWN INDICATION
     Dosage: 15 MG, PER WEEK (LOW DOSE)
     Route: 065
  4. FOLIC ACID. [Concomitant]
     Active Substance: FOLIC ACID
     Indication: SUPPLEMENTATION THERAPY
     Dosage: 5 MG, QD
     Route: 065
  5. CELECOXIB. [Suspect]
     Active Substance: CELECOXIB
     Indication: ARTHRALGIA
     Dosage: 400 MG, QD
     Route: 065
  6. COLECALCIFEROL [Concomitant]
     Active Substance: CHOLECALCIFEROL
     Indication: PRODUCT USED FOR UNKNOWN INDICATION
     Dosage: UNK (VITAMIN D3 ANALOG)
     Route: 065

REACTIONS (6)
  - Toxicity to various agents [Recovered/Resolved]
  - Skin erosion [Recovered/Resolved]
  - Psoriasis [Recovered/Resolved]
  - Skin fibrosis [Recovered/Resolved]
  - Skin ulcer [Recovered/Resolved]
  - Rash erythematous [Recovered/Resolved]
